FAERS Safety Report 8651851 (Version 2)
Quarter: 2012Q4

REPORT INFORMATION
  Report Type: 
  Country: JP (occurrence: JP)
  Receive Date: 20120706
  Receipt Date: 20120829
  Transmission Date: 20130627
  Serious: Yes (Hospitalization)
  Sender: FDA-Public Use
  Company Number: JP-SANOFI-AVENTIS-2012SA041028

PATIENT
  Age: 54 Year
  Sex: Female
  Weight: 51 kg

DRUGS (9)
  1. CLEXANE [Suspect]
     Indication: THROMBOSIS PROPHYLAXIS
     Route: 058
     Dates: start: 20110727, end: 20110727
  2. CLEXANE [Suspect]
     Indication: THROMBOSIS PROPHYLAXIS
     Route: 058
     Dates: start: 20110728, end: 20110728
  3. CLEXANE [Suspect]
     Indication: THROMBOSIS PROPHYLAXIS
     Route: 058
     Dates: start: 20110729, end: 20110729
  4. CLEXANE [Suspect]
     Indication: THROMBOSIS PROPHYLAXIS
     Route: 058
     Dates: start: 20110730, end: 20110802
  5. CLEXANE [Suspect]
     Indication: THROMBOSIS PROPHYLAXIS
     Route: 058
     Dates: start: 20110803, end: 20110803
  6. ANAESTHETICS, GENERAL [Concomitant]
     Dosage: systemic anesthesia combined with epidural anesthesia
  7. PENTCILLIN [Concomitant]
     Indication: INFECTION PROPHYLAXIS
     Route: 041
     Dates: start: 20110726, end: 20110727
  8. LOXONIN [Concomitant]
     Indication: PAIN PROPHYLAXIS
     Route: 048
     Dates: start: 20110727, end: 20110817
  9. CATLEP [Concomitant]
     Indication: PAIN PROPHYLAXIS
     Dosage: 40 sheets/week
     Route: 061

REACTIONS (8)
  - Subdural haematoma [Recovered/Resolved]
  - Loss of consciousness [Recovered/Resolved]
  - Headache [Recovered/Resolved]
  - Nausea [Recovered/Resolved]
  - Hyperaesthesia [Recovered/Resolved]
  - Muscle rigidity [Recovered/Resolved]
  - Asthenia [Recovered/Resolved]
  - Hypoaesthesia [Recovered/Resolved]
